FAERS Safety Report 5062728-2 (Version None)
Quarter: 2006Q3

REPORT INFORMATION
  Report Type: 
  Country: None (occurrence: None)
  Receive Date: 20060724
  Receipt Date: 20060724
  Transmission Date: 20061208
  Serious: No
  Sender: FDA-Public Use
  Company Number: None

PATIENT
  Sex: Female
  Weight: 70 kg

DRUGS (11)
  1. CEREBYX [Suspect]
     Indication: ATRIAL FIBRILLATION
     Dosage: SEE IMAGE
     Route: 042
     Dates: start: 20060519, end: 20060525
  2. CEREBYX [Suspect]
     Indication: CEREBROVASCULAR ACCIDENT
     Dosage: SEE IMAGE
     Route: 042
     Dates: start: 20060519, end: 20060525
  3. CEREBYX [Suspect]
     Indication: CONVULSION PROPHYLAXIS
     Dosage: SEE IMAGE
     Route: 042
     Dates: start: 20060519, end: 20060525
  4. CEREBYX [Suspect]
     Indication: DIABETES MELLITUS
     Dosage: SEE IMAGE
     Route: 042
     Dates: start: 20060519, end: 20060525
  5. CEREBYX [Suspect]
     Indication: ATRIAL FIBRILLATION
     Dosage: SEE IMAGE
     Route: 042
     Dates: start: 20060516
  6. CEREBYX [Suspect]
     Indication: CEREBROVASCULAR ACCIDENT
     Dosage: SEE IMAGE
     Route: 042
     Dates: start: 20060516
  7. CEREBYX [Suspect]
     Indication: CONVULSION PROPHYLAXIS
     Dosage: SEE IMAGE
     Route: 042
     Dates: start: 20060516
  8. CEREBYX [Suspect]
     Indication: DIABETES MELLITUS
     Dosage: SEE IMAGE
     Route: 042
     Dates: start: 20060516
  9. CARDIZEM [Concomitant]
  10. NEURONTIN [Concomitant]
  11. VALPROIC ACID [Concomitant]

REACTIONS (3)
  - ALANINE AMINOTRANSFERASE INCREASED [None]
  - ASPARTATE AMINOTRANSFERASE INCREASED [None]
  - BLOOD ALKALINE PHOSPHATASE INCREASED [None]
